FAERS Safety Report 16659151 (Version 1)
Quarter: 2019Q3

REPORT INFORMATION
  Report Type: Report from Study
  Country: NL (occurrence: NL)
  Receive Date: 20190802
  Receipt Date: 20190802
  Transmission Date: 20191004
  Serious: Yes (Hospitalization)
  Sender: FDA-Public Use
  Company Number: NL-AMGEN-NLDSL2019120947

PATIENT
  Age: 55 Year
  Sex: Female

DRUGS (5)
  1. AMITRIPTYLINE HCL [Concomitant]
     Active Substance: AMITRIPTYLINE
     Dosage: 25 MILLIGRAM, QD
  2. PARACETAMOL [Concomitant]
     Active Substance: ACETAMINOPHEN
     Dosage: 1000 MILLIGRAM, 4D1T
  3. FENTANYL. [Concomitant]
     Active Substance: FENTANYL
     Dosage: 25 UG/HR (GENERIC+DUROGESIC), 1X3D1PL
  4. FLUCLOXACILLINE [FLUCLOXACILLIN] [Concomitant]
     Dosage: 500 MILLIGRAM, 4D1C
  5. XGEVA [Suspect]
     Active Substance: DENOSUMAB
     Indication: PROPHYLAXIS
     Dosage: 120 MILLIGRAM (70MG/ML FLACON 1,7ML), Q4WK
     Route: 065

REACTIONS (1)
  - Skin infection [Unknown]

NARRATIVE: CASE EVENT DATE: 20190718
